FAERS Safety Report 5127616-1 (Version None)
Quarter: 2006Q4

REPORT INFORMATION
  Report Type: 
  Country: None (occurrence: None)
  Receive Date: 20061016
  Receipt Date: 20060805
  Transmission Date: 20070319
  Serious: Yes (Hospitalization)
  Sender: FDA-Public Use
  Company Number: PHEH2006US10063

PATIENT
  Age: 69 Year
  Sex: Female
  Weight: 98.866 kg

DRUGS (7)
  1. COMTAN [Suspect]
     Indication: PARKINSON'S DISEASE
     Dosage: 200 MG, TID
     Route: 048
     Dates: start: 20060501
  2. LEVOXYL [Concomitant]
     Dosage: 0.100 MCG OD
     Route: 048
  3. SINEMET CR [Concomitant]
     Dosage: 3 TABS OD
     Route: 048
  4. AMANTADINE HCL [Concomitant]
     Dosage: 200 MG, QD
     Route: 048
  5. CALCIUM GLUCONATE [Concomitant]
     Dosage: 1200 MG, QD
     Route: 048
  6. JOINT FOOD [Concomitant]
     Dosage: 2 DAILY
     Route: 048
  7. VITAMINS NOS [Concomitant]

REACTIONS (15)
  - ABDOMINAL PAIN UPPER [None]
  - ALOPECIA [None]
  - BALANCE DISORDER [None]
  - COORDINATION ABNORMAL [None]
  - DIZZINESS [None]
  - DYSPEPSIA [None]
  - DYSPHAGIA [None]
  - FALL [None]
  - HEAD DISCOMFORT [None]
  - INSOMNIA [None]
  - MUSCULOSKELETAL STIFFNESS [None]
  - NAIL DISCOLOURATION [None]
  - PARAESTHESIA [None]
  - POLLAKIURIA [None]
  - POLYPECTOMY [None]
